FAERS Safety Report 15231275 (Version 1)
Quarter: 2018Q4

REPORT INFORMATION
  Report Type: Report from Study
  Country: SA (occurrence: SA)
  Receive Date: 20180802
  Receipt Date: 20180802
  Transmission Date: 20190204
  Serious: Yes (Hospitalization)
  Sender: FDA-Public Use
  Company Number: SA-MYLANLABS-2018M1057199

PATIENT
  Age: 42 Year
  Sex: Female

DRUGS (1)
  1. DROSPIRENONE/ETHINYLESTRADIOL [Suspect]
     Active Substance: DROSPIRENONE\ETHINYL ESTRADIOL
     Indication: ORAL CONTRACEPTION
     Dosage: STARTED 2 MONTHS BEFORE PRESENTATION
     Route: 048

REACTIONS (4)
  - Cauda equina syndrome [Unknown]
  - Vena cava thrombosis [Unknown]
  - Deep vein thrombosis [Recovering/Resolving]
  - Pelvic venous thrombosis [Unknown]
